FAERS Safety Report 7243049-6 (Version None)
Quarter: 2011Q1

REPORT INFORMATION
  Report Type: 
  Country: None (occurrence: None)
  Receive Date: 20110125
  Receipt Date: 20101122
  Transmission Date: 20110831
  Serious: No
  Sender: FDA-Public Use
  Company Number: US-AMGEN-USASP2010004294

PATIENT
  Age: 65 Year
  Sex: Female
  Weight: 67.12 kg

DRUGS (2)
  1. PROLIA [Suspect]
     Indication: OSTEOPOROSIS POSTMENOPAUSAL
     Dosage: 60 MG, Q6MO
     Route: 058
     Dates: start: 20101108
  2. PREDNISONE [Concomitant]

REACTIONS (3)
  - BACK PAIN [None]
  - ARTHRALGIA [None]
  - PAIN [None]
